FAERS Safety Report 23945955 (Version 1)
Quarter: 2024Q2

REPORT INFORMATION
  Report Type: Spontaneous
  Country: US (occurrence: US)
  Receive Date: 20240606
  Receipt Date: 20240606
  Transmission Date: 20240716
  Serious: Yes (Other)
  Sender: FDA-Public Use
  Company Number: US-BIOGEN-2024BI01266736

PATIENT
  Sex: Male
  Weight: 83.447 kg

DRUGS (21)
  1. AMPYRA [Suspect]
     Active Substance: DALFAMPRIDINE
     Indication: Product used for unknown indication
     Dosage: 10 MILLIGRAM, BID
     Route: 048
     Dates: start: 20240201
  2. TECFIDERA [Suspect]
     Active Substance: DIMETHYL FUMARATE
     Indication: Multiple sclerosis
     Dosage: 240 MILLIGRAM, BID
     Route: 048
     Dates: start: 20240205
  3. TECFIDERA [Suspect]
     Active Substance: DIMETHYL FUMARATE
     Dosage: STARTING DOSE, 120 MILLIGRAM
     Route: 048
     Dates: start: 20140609
  4. TECFIDERA [Suspect]
     Active Substance: DIMETHYL FUMARATE
     Dosage: MAINTENANCE DOSE, 240 MILLIGRAM
     Route: 048
  5. TECFIDERA [Suspect]
     Active Substance: DIMETHYL FUMARATE
     Dosage: MAINTENANCE DOSE, 240 MILLIGRAM
     Route: 048
     Dates: start: 20240201
  6. AVONEX [Suspect]
     Active Substance: INTERFERON BETA-1A
     Indication: Multiple sclerosis
     Dosage: 30 MICROGRAM, WEEKLY
     Route: 030
     Dates: start: 20110701
  7. DIMETHYL FUMARATE [Suspect]
     Active Substance: DIMETHYL FUMARATE
     Indication: Multiple sclerosis
     Dosage: 240 MILLIGRAM, BID
     Route: 048
     Dates: start: 20240205
  8. ZYLOPRIM [Concomitant]
     Active Substance: ALLOPURINOL
     Indication: Product used for unknown indication
     Dosage: 100 MG; 1 TABLET ORAL PER DAY
     Route: 048
     Dates: start: 20240515
  9. NORVASC [Concomitant]
     Active Substance: AMLODIPINE BESYLATE
     Indication: Product used for unknown indication
     Dosage: 10 MG; 1 TABLET ORAL PER DAY
     Route: 048
     Dates: start: 20240515
  10. VITAMIN B COMPLEX [Concomitant]
     Active Substance: CYANOCOBALAMIN\DEXPANTHENOL\NIACINAMIDE\PYRIDOXINE HYDROCHLORIDE\RIBOFLAVIN 5^-PHOSPHATE SODIUM\THIA
     Indication: Product used for unknown indication
     Dosage: 1 DOSAGE FORM, QD
     Route: 065
  11. VITAMIN D3 [Concomitant]
     Active Substance: CHOLECALCIFEROL
     Indication: Product used for unknown indication
     Dosage: 25 MICROGRAM, QD
     Route: 048
  12. LOFIBRA [Concomitant]
     Active Substance: FENOFIBRATE
     Indication: Product used for unknown indication
     Dosage: 134 MILLIGRAM, WITH BREAKFAST
     Route: 048
     Dates: start: 20240515
  13. ANIMI-3 [Concomitant]
     Active Substance: CHOLECALCIFEROL\CYANOCOBALAMIN\DOCONEXENT\FOLIC ACID\ICOSAPENT\OMEGA-3 FATTY ACIDS\PYRIDOXINE HYDROC
     Indication: Product used for unknown indication
     Dosage: 500MG-500MCG-1MG-12.5 MG
     Route: 065
     Dates: start: 20181218
  14. FOLVITE [Concomitant]
     Active Substance: FOLIC ACID
     Indication: Product used for unknown indication
     Dosage: 1 MILLIGRAM, QD
     Route: 048
     Dates: start: 20240515
  15. LOZOL [Concomitant]
     Active Substance: INDAPAMIDE
     Indication: Product used for unknown indication
     Dosage: 1 TABLET ORAL PER DAY; 2.5 MG
     Route: 048
     Dates: start: 20240515
  16. ZESTRIL [Concomitant]
     Active Substance: LISINOPRIL
     Indication: Product used for unknown indication
     Dosage: 1 TABLET ORAL PER DAY; 20 MG
     Route: 048
     Dates: start: 20240515
  17. PRILOSEC [Concomitant]
     Active Substance: OMEPRAZOLE MAGNESIUM
     Indication: Product used for unknown indication
     Dosage: 1 TABLET ORAL PER DAY; 20 MG
     Route: 048
     Dates: start: 20240515
  18. MAGNESIUM OXIDE [Concomitant]
     Active Substance: MAGNESIUM OXIDE
     Indication: Product used for unknown indication
     Dosage: 1 TABLET ORAL PER DAY; 400 MG
     Route: 048
  19. Tripilix [Concomitant]
     Indication: Product used for unknown indication
     Dosage: 1 TABLET ORAL PER DAY; 135 MG
     Route: 048
     Dates: start: 20220614, end: 20240523
  20. VALIUM [Concomitant]
     Active Substance: DIAZEPAM
     Indication: Product used for unknown indication
     Dosage: 1 TABLET ORAL PO 30 MINS BEFORE MRI
     Route: 048
     Dates: start: 20220614, end: 20240523
  21. ZINC GLUCONATE [Concomitant]
     Active Substance: ZINC GLUCONATE
     Indication: Product used for unknown indication
     Dosage: 1 TABLET ORAL PER DAY; 50 MG
     Route: 048
     Dates: end: 20240523

REACTIONS (1)
  - Prostate cancer [Unknown]
